FAERS Safety Report 6780384-X (Version None)
Quarter: 2010Q2

REPORT INFORMATION
  Report Type: 
  Country: None (occurrence: None)
  Receive Date: 20100618
  Receipt Date: 20100614
  Transmission Date: 20101027
  Serious: Yes (Disabling)
  Sender: FDA-Public Use
  Company Number: US-GILEAD-2010-0028830

PATIENT
  Sex: Female
  Weight: 56.75 kg

DRUGS (13)
  1. LETAIRIS [Suspect]
     Indication: PULMONARY ARTERIAL HYPERTENSION
     Route: 048
     Dates: start: 20100426, end: 20100526
  2. LETAIRIS [Suspect]
     Route: 048
     Dates: start: 20100105, end: 20100423
  3. LETAIRIS [Suspect]
     Route: 048
     Dates: start: 20070101, end: 20100104
  4. WARFARIN SODIUM [Concomitant]
  5. FUROSEMIDE [Concomitant]
  6. DIGOXIN [Concomitant]
  7. ALENDRONATE SODIUM [Concomitant]
  8. ALPRAZOLAM [Concomitant]
  9. BUPROPION HCL [Concomitant]
  10. CITALOPRAM HYDROBROMIDE [Concomitant]
  11. LEVOTHYROXINE SODIUM [Concomitant]
  12. KLOR-CON [Concomitant]
  13. CALCIUM CARBONATE [Concomitant]

REACTIONS (2)
  - ARTHRALGIA [None]
  - PAIN IN EXTREMITY [None]
